FAERS Safety Report 17861870 (Version 1)
Quarter: 2020Q2

REPORT INFORMATION
  Report Type: Spontaneous
  Country: US (occurrence: US)
  Receive Date: 20200604
  Receipt Date: 20200604
  Transmission Date: 20200714
  Serious: Yes (Hospitalization, Other)
  Sender: FDA-Public Use
  Company Number: US-AMGEN-USASP2020087611

PATIENT
  Age: 49 Year
  Sex: Female

DRUGS (1)
  1. PROLIA [Suspect]
     Active Substance: DENOSUMAB
     Indication: OSTEOPOROSIS
     Dosage: 60 MILLIGRAM, Q6MO
     Route: 065
     Dates: start: 201906

REACTIONS (9)
  - Gastrooesophageal reflux disease [Not Recovered/Not Resolved]
  - Herpes zoster [Unknown]
  - Rash [Unknown]
  - Retching [Unknown]
  - Hypoaesthesia [Unknown]
  - Deafness [Unknown]
  - Dizziness [Unknown]
  - Blood pressure abnormal [Unknown]
  - Headache [Unknown]

NARRATIVE: CASE EVENT DATE: 2019
